FAERS Safety Report 5046959-3 (Version None)
Quarter: 2006Q2

REPORT INFORMATION
  Report Type: 
  Country: None (occurrence: None)
  Receive Date: 20060601
  Receipt Date: 20060214
  Transmission Date: 20061013
  Serious: No
  Sender: FDA-Public Use
  Company Number: 2006PV008663

PATIENT
  Age: 71 Year
  Sex: Male
  Weight: 111.1313 kg

DRUGS (7)
  1. BYETTA [Suspect]
     Indication: DIABETES MELLITUS NON-INSULIN-DEPENDENT
     Dosage: SEE IMAGE
     Route: 058
     Dates: start: 20060121, end: 20060131
  2. BYETTA [Suspect]
     Indication: DIABETES MELLITUS NON-INSULIN-DEPENDENT
     Dosage: SEE IMAGE
     Route: 058
     Dates: start: 20060201
  3. METFORMIN [Concomitant]
  4. ACTOS /USA/ [Concomitant]
  5. ZESTRIL [Concomitant]
  6. VERAPAMIL [Concomitant]
  7. PROCAR [Concomitant]

REACTIONS (4)
  - ABDOMINAL PAIN UPPER [None]
  - DYSPEPSIA [None]
  - HYPERCHLORHYDRIA [None]
  - NAUSEA [None]
